FAERS Safety Report 5816183-2 (Version None)
Quarter: 2008Q3

REPORT INFORMATION
  Report Type: 
  Country: None (occurrence: None)
  Receive Date: 20080721
  Receipt Date: 20080716
  Transmission Date: 20090109
  Serious: Yes (Other)
  Sender: FDA-Public Use
  Company Number: A0737992A

PATIENT
  Age: 52 Year
  Sex: Female

DRUGS (3)
  1. WELLBUTRIN [Suspect]
     Indication: DEPRESSION
     Dosage: 100MG PER DAY
     Route: 048
     Dates: end: 20070901
  2. TEMAZEPAM [Concomitant]
  3. PROVIGIL [Concomitant]

REACTIONS (6)
  - AGGRESSION [None]
  - CONFUSIONAL STATE [None]
  - INSOMNIA [None]
  - IRRITABILITY [None]
  - PERSONALITY CHANGE [None]
  - SOMNOLENCE [None]
